FAERS Safety Report 13428901 (Version 5)
Quarter: 2017Q3

REPORT INFORMATION
  Report Type: Spontaneous
  Country: JP (occurrence: JP)
  Receive Date: 20170411
  Receipt Date: 20170817
  Transmission Date: 20171127
  Serious: Yes (Hospitalization, Other)
  Sender: FDA-Public Use
  Company Number: JP-ABBVIE-17P-087-1939847-00

PATIENT
  Age: 43 Year
  Sex: Male
  Weight: 72 kg

DRUGS (8)
  1. CLARITHROMYCIN. [Suspect]
     Active Substance: CLARITHROMYCIN
     Route: 048
     Dates: start: 20170110
  2. AZOPT [Concomitant]
     Active Substance: BRINZOLAMIDE
     Indication: GLAUCOMA
     Dosage: EYE DROPS
     Route: 047
  3. PASETOCIN [Suspect]
     Active Substance: AMOXICILLIN
     Indication: PRODUCT USED FOR UNKNOWN INDICATION
     Route: 065
     Dates: start: 20160612
  4. CLARITHROMYCIN. [Suspect]
     Active Substance: CLARITHROMYCIN
     Indication: HELICOBACTER INFECTION
     Route: 048
     Dates: start: 20161010, end: 20161013
  5. AMOXICILLIN. [Suspect]
     Active Substance: AMOXICILLIN
     Indication: HELICOBACTER INFECTION
     Route: 048
     Dates: start: 20161010, end: 20161013
  6. BIOFERMIN [Concomitant]
     Active Substance: BACILLUS SUBTILIS\LACTOBACILLUS ACIDOPHILUS\STREPTOCOCCUS FAECAIS
     Indication: HELICOBACTER INFECTION
     Route: 048
     Dates: start: 20161010, end: 20161013
  7. TAKECAB [Concomitant]
     Active Substance: VONOPRAZAN FUMURATE
     Indication: HELICOBACTER INFECTION
     Route: 048
     Dates: start: 20161010, end: 20161013
  8. TAPROS [Concomitant]
     Active Substance: TAFLUPROST
     Indication: GLAUCOMA
     Dosage: EYE DROPS
     Route: 047

REACTIONS (2)
  - Dyspnoea [Unknown]
  - Acute generalised exanthematous pustulosis [Recovering/Resolving]

NARRATIVE: CASE EVENT DATE: 20161013
